FAERS Safety Report 5985242-6 (Version None)
Quarter: 2008Q4

REPORT INFORMATION
  Report Type: 
  Country: None (occurrence: None)
  Receive Date: 20081203
  Receipt Date: 20081118
  Transmission Date: 20090506
  Serious: No
  Sender: FDA-Public Use
  Company Number: SP1200800560

PATIENT
  Age: 30 Year
  Sex: Female

DRUGS (1)
  1. AMITIZA [Suspect]
     Indication: CONSTIPATION
     Dosage: 24 MCG, BID, ORAL
     Route: 048
     Dates: start: 20080101, end: 20080101

REACTIONS (3)
  - CHEST PAIN [None]
  - GLOSSODYNIA [None]
  - HEADACHE [None]
